FAERS Safety Report 6107805-X (Version None)
Quarter: 2009Q1

REPORT INFORMATION
  Report Type: 
  Country: None (occurrence: None)
  Receive Date: 20090309
  Receipt Date: 20090225
  Transmission Date: 20090719
  Serious: Yes (Other)
  Sender: FDA-Public Use
  Company Number: B0563113A

PATIENT
  Age: 70 Year
  Sex: Male

DRUGS (5)
  1. MELPHALAN [Suspect]
     Indication: MULTIPLE MYELOMA
     Dosage: 200MGM2 PER DAY
  2. DEXAMETHASONE [Suspect]
     Dosage: 1MGK PER DAY
     Route: 042
  3. INFLIXIMAB [Concomitant]
     Dosage: 15MGK PER DAY
  4. NEUPOGEN [Concomitant]
  5. GM CSF [Concomitant]

REACTIONS (8)
  - CLOSTRIDIAL INFECTION [None]
  - DIARRHOEA [None]
  - ERYTHEMA [None]
  - GASTROINTESTINAL DISORDER [None]
  - GASTROINTESTINAL HAEMORRHAGE [None]
  - GASTROINTESTINAL ULCER [None]
  - GRAFT VERSUS HOST DISEASE [None]
  - NO THERAPEUTIC RESPONSE [None]
